FAERS Safety Report 5645965-5 (Version None)
Quarter: 2008Q1

REPORT INFORMATION
  Report Type: 
  Country: None (occurrence: None)
  Receive Date: 20080229
  Receipt Date: 20080218
  Transmission Date: 20080703
  Serious: Yes (Hospitalization, Other)
  Sender: FDA-Public Use
  Company Number: US-PFIZER INC-2008015339

PATIENT
  Age: 33 Year
  Sex: Female

DRUGS (10)
  1. SERTRALINE [Suspect]
     Dosage: DAILY DOSE:50MG
  2. PHENYTOIN [Suspect]
     Dosage: DAILY DOSE:400MG
  3. CLOZAPINE [Suspect]
     Dosage: DAILY DOSE:200MG
  4. CLONAZEPAM [Suspect]
     Dosage: DAILY DOSE:.5MG
  5. ARIPIPRAZOLE [Suspect]
     Dosage: DAILY DOSE:5MG
  6. RISPERIDONE [Suspect]
     Dosage: DAILY DOSE:6MG
  7. NALTREXONE HYDROCHLORIDE [Concomitant]
     Dosage: DAILY DOSE:50MG
  8. DIVALPROEX [Concomitant]
     Dosage: DAILY DOSE:3000MG
  9. ETHINYLESTRADIOL W/NORETHINDRONE [Concomitant]
  10. VITAMIN CAP [Concomitant]

REACTIONS (2)
  - AGGRESSION [None]
  - INTENTIONAL SELF-INJURY [None]
